FAERS Safety Report 7015136-9 (Version None)
Quarter: 2010Q3

REPORT INFORMATION
  Report Type: 
  Country: None (occurrence: None)
  Receive Date: 20100927
  Receipt Date: 20090925
  Transmission Date: 20110219
  Serious: No
  Sender: FDA-Public Use
  Company Number: US-ASTRAZENECA-2009SE15803

PATIENT
  Age: 80 Year
  Sex: Female
  Weight: 69.4 kg

DRUGS (6)
  1. ARIMIDEX [Suspect]
     Route: 048
     Dates: start: 20070701
  2. FOSAMAX [Concomitant]
  3. EYE DROPS [Concomitant]
  4. CENTRUM SILVER VITAMINS [Concomitant]
  5. GLUCOSAMINE [Concomitant]
  6. VITAMIN D [Concomitant]

REACTIONS (2)
  - BONE DENSITY DECREASED [None]
  - EXOSTOSIS [None]
